FAERS Safety Report 6840463-5 (Version None)
Quarter: 2010Q3

REPORT INFORMATION
  Report Type: 
  Country: None (occurrence: None)
  Receive Date: 20100709
  Receipt Date: 20100625
  Transmission Date: 20110219
  Serious: Yes (Death, Hospitalization, Other)
  Sender: FDA-Public Use
  Company Number: 200601IM000081

PATIENT
  Age: 77 Year
  Sex: Male

DRUGS (1)
  1. INTERFERON GAMMA-1B [Suspect]
     Indication: IDIOPATHIC PULMONARY FIBROSIS

REACTIONS (7)
  - ACUTE LUNG INJURY [None]
  - ACUTE RESPIRATORY FAILURE [None]
  - ARTHRALGIA [None]
  - CHILLS [None]
  - DRUG TOXICITY [None]
  - NAUSEA [None]
  - RESPIRATORY FAILURE [None]
